FAERS Safety Report 18346845 (Version 2)
Quarter: 2021Q3

REPORT INFORMATION
  Report Type: Spontaneous
  Country: DE (occurrence: DE)
  Receive Date: 20201006
  Receipt Date: 20210701
  Transmission Date: 20211014
  Serious: Yes (Hospitalization)
  Sender: FDA-Public Use
  Company Number: DE-DRREDDYS-GER/GER/20/0127567

PATIENT
  Age: 52 Year
  Sex: Female

DRUGS (3)
  1. OLANZAPINE. [Suspect]
     Active Substance: OLANZAPINE
     Indication: PRODUCT USED FOR UNKNOWN INDICATION
     Dosage: AB 17.08.2020 REDUZIERUNG AUF 10MG/D. AM 20.08.2020 ABGESETZT. (FROM 17.08.2020 REDUCTION TO 10MG/D.
     Dates: start: 20200804, end: 20200816
  2. DIAZEPAM. [Suspect]
     Active Substance: DIAZEPAM
     Indication: PRODUCT USED FOR UNKNOWN INDICATION
     Dates: start: 20200727
  3. OLANZAPINE. [Suspect]
     Active Substance: OLANZAPINE
     Dates: start: 20200730, end: 20200803

REACTIONS (6)
  - Abdominal distension [Recovered/Resolved]
  - Abdominal pain [Recovered/Resolved]
  - Gastrointestinal sounds abnormal [Recovered/Resolved]
  - Constipation [Recovered/Resolved]
  - Abdominal tenderness [Recovered/Resolved]
  - Dyschezia [Unknown]

NARRATIVE: CASE EVENT DATE: 20200806
